FAERS Safety Report 8363801-3 (Version None)
Quarter: 2012Q2

REPORT INFORMATION
  Report Type: 
  Country: None (occurrence: None)
  Receive Date: 20120515
  Receipt Date: 20120515
  Transmission Date: 20120825
  Serious: Yes (Hospitalization)
  Sender: FDA-Public Use
  Company Number: None

PATIENT
  Age: 83 Year
  Sex: Male
  Weight: 76.9 kg

DRUGS (1)
  1. CLINDAMYCIN [Suspect]
     Indication: CELLULITIS
     Dosage: 300 MG TID PO
     Route: 048
     Dates: start: 20120502, end: 20120509

REACTIONS (2)
  - EYE SWELLING [None]
  - RASH MACULO-PAPULAR [None]
